FAERS Safety Report 8059335-6 (Version None)
Quarter: 2012Q1

REPORT INFORMATION
  Report Type: 
  Country: None (occurrence: None)
  Receive Date: 20120120
  Receipt Date: 20120120
  Transmission Date: 20120608
  Serious: No
  Sender: FDA-Public Use
  Company Number: None

PATIENT
  Age: 49 Year
  Sex: Male
  Weight: 102.05 kg

DRUGS (2)
  1. PROPECIA [Suspect]
     Indication: ALOPECIA
     Dosage: 1 MG
     Route: 048
     Dates: start: 20030615, end: 20111215
  2. PROSCAR [Concomitant]
     Indication: BENIGN PROSTATIC HYPERPLASIA
     Dosage: 1/4 TABLET OR 5 MG
     Route: 048

REACTIONS (4)
  - ERECTILE DYSFUNCTION [None]
  - DEPRESSION [None]
  - ANXIETY [None]
  - BENIGN PROSTATIC HYPERPLASIA [None]
